FAERS Safety Report 13556622 (Version 1)
Quarter: 2017Q2

REPORT INFORMATION
  Report Type: Spontaneous
  Country: US (occurrence: US)
  Receive Date: 20170517
  Receipt Date: 20170517
  Transmission Date: 20170830
  Serious: No
  Sender: FDA-Public Use
  Company Number: US-SA-2017SA048592

PATIENT
  Age: 71 Year
  Sex: Female

DRUGS (3)
  1. JANUVIA [Concomitant]
     Active Substance: SITAGLIPTIN PHOSPHATE
  2. SOLOSTAR [Concomitant]
     Active Substance: DEVICE
     Indication: TYPE 2 DIABETES MELLITUS
  3. TOUJEO [Suspect]
     Active Substance: INSULIN GLARGINE
     Indication: TYPE 2 DIABETES MELLITUS
     Dosage: 13-16 U
     Route: 065

REACTIONS (6)
  - Asthenia [Unknown]
  - Condition aggravated [Unknown]
  - Blood glucose increased [Unknown]
  - Memory impairment [Unknown]
  - Blood glucose decreased [Unknown]
  - Dizziness [Unknown]
